FAERS Safety Report 9192848 (Version 1)
Quarter: 2013Q1

REPORT INFORMATION
  Report Type: Spontaneous
  Country: US (occurrence: None)
  Receive Date: 20120703
  Receipt Date: 20120703
  Transmission Date: 20140127
  Serious: No
  Sender: FDA-Public Use
  Company Number: PHEH2012US007757

PATIENT
  Age: 53 Year
  Sex: Female
  Weight: 68.5 kg

DRUGS (15)
  1. GILENYA (FTY)CAPSULE,0.5MG [Suspect]
     Indication: MULTIPLE SCLEROSIS
     Route: 048
     Dates: start: 201203
  2. BUPROPION (BUPROPION) [Concomitant]
  3. XANAX (ALPRAZOLAM) [Concomitant]
  4. ZOFRAN (ONDANSETRON HYDROCHLORIDE) [Concomitant]
  5. BACLOFEN (BACLOFEN) [Concomitant]
  6. TRAMADOL (TRAMADOL) [Concomitant]
  7. IBUPROFEN (IBUPROFEN) [Concomitant]
  8. OMEPRAZOLE (OMEPRAZOLE) [Concomitant]
  9. MAGNESIUM (MAGNEISUM ) [Concomitant]
  10. MULTIVITAMINS (ASCORBIC ACID, ERGOCALCIFEROL, FOLIC ACID, NICOTINAMIDE, PANTHENOL, RETINOL, RIBOFLAVIN, THIAMINE HYDROCHLORIDE) [Concomitant]
  11. VITAMIN D (ERGOCALCIFEROL) [Concomitant]
  12. FISH OIL (FISH OIL) [Concomitant]
  13. CHROMIUM (CHROMIUM) [Concomitant]
  14. CALCIUM (CALCIUM) [Concomitant]
  15. MULATEMIN (MULATEMIN) [Concomitant]

REACTIONS (3)
  - Insomnia [None]
  - Hot flush [None]
  - Depression [None]
